FAERS Safety Report 7443091-6 (Version None)
Quarter: 2011Q2

REPORT INFORMATION
  Report Type: 
  Country: None (occurrence: None)
  Receive Date: 20110428
  Receipt Date: 20110417
  Transmission Date: 20111010
  Serious: Yes (Life-Threatening, Other)
  Sender: FDA-Public Use
  Company Number: EG-SANOFI-AVENTIS-2011SA023617

PATIENT
  Age: 49 Year
  Sex: Female

DRUGS (1)
  1. LANTUS [Suspect]
     Indication: TYPE 2 DIABETES MELLITUS
     Route: 058
     Dates: start: 20100313, end: 20110301

REACTIONS (5)
  - HYPERGLYCAEMIA [None]
  - DRUG INEFFECTIVE [None]
  - VERTIGO [None]
  - EYE HAEMORRHAGE [None]
  - BALANCE DISORDER [None]
